FAERS Safety Report 8177699 (Version 4)
Quarter: 2014Q2

REPORT INFORMATION
  Report Type: Spontaneous
  Country: US (occurrence: US)
  Receive Date: 20111012
  Receipt Date: 20140603
  Transmission Date: 20141212
  Serious: Yes (Hospitalization)
  Sender: FDA-Public Use
  Company Number: US-GLAXOSMITHKLINE-A0947977A

PATIENT
  Age: 42 Year
  Sex: Female
  Weight: 45.5 kg

DRUGS (13)
  1. IMITREX [Suspect]
     Indication: MIGRAINE
     Dosage: 100MG AS REQUIRED
     Route: 048
     Dates: start: 20070630
  2. CIPROFLOXACIN [Suspect]
     Indication: URINARY TRACT INFECTION
     Route: 065
     Dates: start: 20070808
  3. TOBRAMYCIN [Suspect]
     Indication: UROSEPSIS
     Dates: start: 20070808
  4. VANCOMYCIN [Suspect]
     Indication: UROSEPSIS
     Route: 065
     Dates: start: 20070808
  5. ROCEPHIN [Suspect]
     Indication: UROSEPSIS
     Dates: start: 20070808
  6. PROPOFOL [Suspect]
     Indication: PRODUCT USED FOR UNKNOWN INDICATION
     Dates: start: 20070810
  7. FENTANYL [Suspect]
     Indication: PRODUCT USED FOR UNKNOWN INDICATION
     Dates: start: 20070811
  8. PREDNISONE [Suspect]
     Indication: PRODUCT USED FOR UNKNOWN INDICATION
     Dates: start: 20070808
  9. LORAZEPAM [Suspect]
     Indication: PRODUCT USED FOR UNKNOWN INDICATION
     Dates: start: 20070818
  10. GENTAMYCIN [Suspect]
     Indication: PRODUCT USED FOR UNKNOWN INDICATION
     Dates: start: 200708
  11. PROPYLTHIOURACIL [Concomitant]
  12. PYRIDOSTIGMINE [Concomitant]
  13. FERROUS SULFATE [Concomitant]

REACTIONS (35)
  - Myasthenia gravis [Unknown]
  - Myocardial infarction [Unknown]
  - Ejection fraction abnormal [Unknown]
  - Cerebrovascular accident [Unknown]
  - Ischaemic cerebral infarction [Unknown]
  - Hemiplegia [Unknown]
  - Pneumothorax [Recovering/Resolving]
  - Acute respiratory failure [Unknown]
  - Terminal state [Unknown]
  - Coma [Unknown]
  - Altered state of consciousness [Unknown]
  - Dyspnoea [Recovering/Resolving]
  - Performance status decreased [Recovering/Resolving]
  - Fatigue [Recovering/Resolving]
  - Nausea [Recovering/Resolving]
  - Vomiting [Unknown]
  - Migraine [Unknown]
  - Bronchospasm [Unknown]
  - Amnesia [Unknown]
  - Cognitive disorder [Unknown]
  - Depression [Unknown]
  - Quality of life decreased [Unknown]
  - Nosocomial infection [Unknown]
  - Urinary tract infection [Unknown]
  - Urosepsis [Unknown]
  - Mental status changes [Unknown]
  - Dehydration [Unknown]
  - Pyrexia [Unknown]
  - Aphonia [Unknown]
  - Vocal cord paralysis [Unknown]
  - Drug ineffective [Unknown]
  - Overdose [Unknown]
  - Drug prescribing error [Unknown]
  - Drug administration error [Unknown]
  - Headache [Unknown]
